FAERS Safety Report 24464262 (Version 1)
Quarter: 2024Q4

REPORT INFORMATION
  Report Type: Spontaneous
  Country: CN (occurrence: CN)
  Receive Date: 20241018
  Receipt Date: 20241018
  Transmission Date: 20250114
  Serious: Yes (Other)
  Sender: PAREXEL
  Company Number: CN-SHANGHAI JUNSHI BIOSCIENCES CO., LTD.-CN2024011618

PATIENT

DRUGS (4)
  1. TORIPALIMAB [Suspect]
     Active Substance: TORIPALIMAB
     Indication: Penile cancer
     Dosage: 240 MG, EVERY 21 DAYS
     Route: 041
     Dates: start: 20240903, end: 20240903
  2. IFOSFAMIDE [Suspect]
     Active Substance: IFOSFAMIDE
     Indication: Penile cancer
     Dosage: 2.1 G, QD
     Route: 041
     Dates: start: 20240903, end: 20240903
  3. PACLITAXEL [Suspect]
     Active Substance: PACLITAXEL
     Indication: Penile cancer
     Dosage: 310 MG, EVERY 21 DAYS
     Route: 041
     Dates: start: 20240903, end: 20240903
  4. CISPLATIN [Suspect]
     Active Substance: CISPLATIN
     Indication: Penile cancer
     Dosage: 45 MG, QD
     Route: 041
     Dates: start: 20240903, end: 20240903

REACTIONS (4)
  - Pruritus [Recovering/Resolving]
  - Chills [Recovering/Resolving]
  - Rash [Recovering/Resolving]
  - Pyrexia [Recovered/Resolved]

NARRATIVE: CASE EVENT DATE: 20240903
